FAERS Safety Report 4683911-1 (Version None)
Quarter: 2005Q2

REPORT INFORMATION
  Report Type: 
  Country: None (occurrence: None)
  Receive Date: 20050607
  Receipt Date: 20050528
  Transmission Date: 20051028
  Serious: Yes (Hospitalization)
  Sender: FDA-Public Use
  Company Number: PHEH2005US06233

PATIENT
  Age: 83 Year
  Sex: Female
  Weight: 61 kg

DRUGS (1)
  1. FORADIL [Suspect]
     Indication: BRONCHITIS CHRONIC
     Dosage: 12 MCG
     Route: 048
     Dates: start: 20030101

REACTIONS (2)
  - INTESTINAL OBSTRUCTION [None]
  - MEDICATION ERROR [None]
